FAERS Safety Report 16348247 (Version 2)
Quarter: 2019Q3

REPORT INFORMATION
  Report Type: Spontaneous
  Country: BE (occurrence: BE)
  Receive Date: 20190523
  Receipt Date: 20190713
  Transmission Date: 20191004
  Serious: Yes (Hospitalization, Other)
  Sender: FDA-Public Use
  Company Number: BE-TAKEDA-2019TUS030501

PATIENT
  Sex: Female

DRUGS (1)
  1. ENTYVIO [Suspect]
     Active Substance: VEDOLIZUMAB
     Indication: PRODUCT USED FOR UNKNOWN INDICATION
     Dosage: UNK
     Route: 065
     Dates: start: 201902

REACTIONS (3)
  - Hepatic function abnormal [Unknown]
  - Hyperferritinaemia [Unknown]
  - Hepatitis toxic [Unknown]

NARRATIVE: CASE EVENT DATE: 20190211
